FAERS Safety Report 19618797 (Version 1)
Quarter: 2021Q3

REPORT INFORMATION
  Report Type: Spontaneous
  Country: US (occurrence: US)
  Receive Date: 20210727
  Receipt Date: 20210727
  Transmission Date: 20211014
  Serious: No
  Sender: FDA-Public Use
  Company Number: US-ROCHE-2769006

PATIENT
  Age: 54 Year
  Sex: Female

DRUGS (2)
  1. XELODA [Suspect]
     Active Substance: CAPECITABINE
     Indication: GASTRIC CANCER
     Dosage: 2 TABLETS TWO TIMES DAILY AFTER MEALS FOR 14 DAYS + 3 TABLETS OF 500 MG TWO TIMES DAILY AFTER MEALS
     Route: 048
     Dates: start: 202012
  2. XELODA [Suspect]
     Active Substance: CAPECITABINE
     Dosage: 3 TABLETS TWO TIMES DAILY AFTER MEALS FOR 14 DAYS
     Route: 048
     Dates: start: 202101

REACTIONS (5)
  - Chromaturia [Unknown]
  - Headache [Unknown]
  - Fatigue [Unknown]
  - Temperature intolerance [Unknown]
  - Off label use [Unknown]

NARRATIVE: CASE EVENT DATE: 20210201
